FAERS Safety Report 15982091 (Version 1)
Quarter: 2019Q1

REPORT INFORMATION
  Report Type: Spontaneous
  Country: JP (occurrence: JP)
  Receive Date: 20190219
  Receipt Date: 20190219
  Transmission Date: 20190418
  Serious: Yes (Life-Threatening, Hospitalization, Other)
  Sender: FDA-Public Use
  Company Number: JP-MYLANLABS-2019M1015809

PATIENT
  Age: 69 Year
  Sex: Male

DRUGS (10)
  1. BISOPROLOL [Suspect]
     Active Substance: BISOPROLOL
     Indication: ACUTE CORONARY SYNDROME
     Route: 048
  2. ASPIRIN                            /00002701/ [Concomitant]
     Active Substance: ASPIRIN
     Indication: ACUTE CORONARY SYNDROME
     Route: 048
  3. LISINOPRIL. [Concomitant]
     Active Substance: LISINOPRIL
     Indication: ACUTE CORONARY SYNDROME
     Route: 048
  4. ROSUVASTATIN. [Concomitant]
     Active Substance: ROSUVASTATIN
     Indication: ACUTE CORONARY SYNDROME
     Route: 048
  5. AMLODIPINE [Concomitant]
     Active Substance: AMLODIPINE BESYLATE
     Indication: HYPERTENSION
     Route: 065
  6. VALSARTAN. [Concomitant]
     Active Substance: VALSARTAN
     Indication: HYPERTENSION
     Route: 065
  7. EPLERENONE. [Concomitant]
     Active Substance: EPLERENONE
     Dosage: ALSO GIVEN ALONG WITH AMLODIPINE AND VALSARTAN AS ANTI-HYPERTENSIVE AT AN UNKNOWN DOSE
  8. EVEROLIMUS. [Concomitant]
     Active Substance: EVEROLIMUS
     Indication: ACUTE CORONARY SYNDROME
     Dosage: STENT
     Route: 022
  9. PRASUGREL. [Concomitant]
     Active Substance: PRASUGREL
     Indication: ACUTE CORONARY SYNDROME
     Route: 048
  10. EPLERENONE. [Concomitant]
     Active Substance: EPLERENONE
     Indication: HYPERTENSION
     Route: 048

REACTIONS (1)
  - Arteriospasm coronary [Recovered/Resolved]
